FAERS Safety Report 5873715-6 (Version None)
Quarter: 2008Q3

REPORT INFORMATION
  Report Type: 
  Country: None (occurrence: None)
  Receive Date: 20080908
  Receipt Date: 20080826
  Transmission Date: 20090109
  Serious: Yes (Hospitalization, Disabling, Other)
  Sender: FDA-Public Use
  Company Number: DE-ROCHE-583378

PATIENT
  Age: 73 Year
  Weight: 82 kg

DRUGS (3)
  1. CAPECITABINE [Suspect]
     Route: 065
     Dates: start: 20060131, end: 20060413
  2. ERBITUX [Suspect]
     Indication: DRUG USE FOR UNKNOWN INDICATION
     Route: 042
  3. CAMPTOSAR [Concomitant]
     Route: 042

REACTIONS (6)
  - BODY TEMPERATURE INCREASED [None]
  - CELLULITIS [None]
  - IMPAIRED HEALING [None]
  - INFECTION [None]
  - OEDEMA PERIPHERAL [None]
  - SKIN ULCER [None]
